FAERS Safety Report 21588832 (Version 1)
Quarter: 2022Q4

REPORT INFORMATION
  Report Type: Spontaneous
  Country: FR (occurrence: FR)
  Receive Date: 20221114
  Receipt Date: 20221114
  Transmission Date: 20230113
  Serious: Yes (Other)
  Sender: FDA-Public Use
  Company Number: None

PATIENT
  Age: 74 Year
  Sex: Female
  Weight: 69 kg

DRUGS (9)
  1. ELIQUIS [Suspect]
     Active Substance: APIXABAN
     Indication: Coronary artery disease
     Route: 048
     Dates: start: 202106
  2. ELIQUIS [Suspect]
     Active Substance: APIXABAN
     Route: 048
  3. AMIODARONE [Concomitant]
     Active Substance: AMIODARONE
     Indication: Atrial fibrillation
     Route: 048
     Dates: start: 2010
  4. MOLSIDOMINE [Concomitant]
     Active Substance: MOLSIDOMINE
     Indication: Angina pectoris
     Route: 048
     Dates: start: 2020
  5. IRBESARTAN [Concomitant]
     Active Substance: IRBESARTAN
     Indication: Coronary artery disease
     Route: 048
     Dates: start: 2010
  6. LEVOTHYROXINE [Concomitant]
     Active Substance: LEVOTHYROXINE
     Indication: Hypothyroidism
     Route: 048
  7. ROSUVASTATIN [Concomitant]
     Active Substance: ROSUVASTATIN
     Indication: Dyslipidaemia
     Route: 048
  8. FUROSEMIDE [Concomitant]
     Active Substance: FUROSEMIDE
     Indication: Coronary artery disease
     Route: 048
     Dates: start: 2020
  9. CLOPIDOGREL HYDROCHLORIDE [Concomitant]
     Active Substance: CLOPIDOGREL HYDROCHLORIDE
     Indication: Coronary artery disease
     Route: 048
     Dates: start: 202106

REACTIONS (2)
  - Hallucinations, mixed [Recovered/Resolved]
  - Product use in unapproved indication [Unknown]

NARRATIVE: CASE EVENT DATE: 20210601
